FAERS Safety Report 7235259-9 (Version None)
Quarter: 2011Q1

REPORT INFORMATION
  Report Type: 
  Country: None (occurrence: None)
  Receive Date: 20110111
  Receipt Date: 20110104
  Transmission Date: 20110831
  Serious: Yes (Hospitalization)
  Sender: FDA-Public Use
  Company Number: 2010SP052257

PATIENT
  Age: 47 Year
  Sex: Female
  Weight: 63 kg

DRUGS (14)
  1. PARACETAMOL [Concomitant]
  2. DEXAMETHASONE [Concomitant]
  3. DOMPERIDONE [Concomitant]
  4. GAVISCON [Concomitant]
  5. AMITRIPTYLINE HCL [Concomitant]
  6. ABT-888 (INVESTIGATIONAL DRUG) [Suspect]
     Indication: OVARIAN CANCER
     Dosage: 40 MG; BID; PO
     Route: 048
     Dates: start: 20100810, end: 20100912
  7. IBUPROFEN [Concomitant]
  8. SENNA ALEXANDRINA [Concomitant]
  9. TEMOZOLOMIDE [Suspect]
     Indication: OVARIAN CANCER
     Dosage: ;PO
     Route: 048
     Dates: start: 20100810, end: 20100912
  10. ONDANSETRON [Concomitant]
  11. OMEPRAZOLE [Concomitant]
  12. CYCLIZINE [Concomitant]
  13. NULYTELY [Concomitant]
  14. ZOPICLONE [Concomitant]

REACTIONS (11)
  - NEUTROPHIL COUNT DECREASED [None]
  - WHITE BLOOD CELL COUNT DECREASED [None]
  - PALPITATIONS [None]
  - VOMITING [None]
  - DYSPNOEA [None]
  - BLOOD SODIUM DECREASED [None]
  - HYPOKALAEMIA [None]
  - NAUSEA [None]
  - FATIGUE [None]
  - DECREASED APPETITE [None]
  - TREATMENT NONCOMPLIANCE [None]
